FAERS Safety Report 12962019 (Version 2)
Quarter: 2017Q1

REPORT INFORMATION
  Report Type: Spontaneous
  Country: US (occurrence: US)
  Receive Date: 20161121
  Receipt Date: 20170106
  Transmission Date: 20170428
  Serious: No
  Sender: FDA-Public Use
  Company Number: US-ASTRAZENECA-2016SF23475

PATIENT
  Age: 75 Year
  Sex: Male
  Weight: 80 kg

DRUGS (3)
  1. NEXIUM 24HR [Suspect]
     Active Substance: ESOMEPRAZOLE MAGNESIUM
     Indication: DYSPEPSIA
     Route: 048
     Dates: start: 20110101, end: 20161020
  2. INDOMETHACIN. [Concomitant]
     Active Substance: INDOMETHACIN
     Indication: GOUT
     Dates: start: 20160910, end: 201611
  3. ECOTRIN [Concomitant]
     Active Substance: ASPIRIN

REACTIONS (6)
  - Oedema [Unknown]
  - Product use issue [Unknown]
  - Pain [Recovered/Resolved]
  - Gait disturbance [Unknown]
  - Condition aggravated [Unknown]
  - Gout [Recovered/Resolved]

NARRATIVE: CASE EVENT DATE: 2016
